FAERS Safety Report 11318275 (Version 3)
Quarter: 2016Q1

REPORT INFORMATION
  Report Type: Spontaneous
  Country: US (occurrence: US)
  Receive Date: 20150728
  Receipt Date: 20160212
  Transmission Date: 20160525
  Serious: Yes (Hospitalization, Disabling)
  Sender: FDA-Public Use
  Company Number: US-ENDO PHARMACEUTICALS INC.-2015-002036

PATIENT
  Age: 58 Year
  Sex: Male
  Weight: 108.96 kg

DRUGS (2)
  1. ANDROGEL [Suspect]
     Active Substance: TESTOSTERONE
     Indication: ANDROGEN REPLACEMENT THERAPY
     Route: 065
     Dates: start: 201011, end: 201106
  2. TESTOPEL [Suspect]
     Active Substance: TESTOSTERONE
     Indication: ANDROGEN REPLACEMENT THERAPY
     Route: 058
     Dates: start: 20120601

REACTIONS (13)
  - Coronary artery disease [Not Recovered/Not Resolved]
  - Acute kidney injury [Not Recovered/Not Resolved]
  - Atrial fibrillation [Not Recovered/Not Resolved]
  - Ischaemic cardiomyopathy [Not Recovered/Not Resolved]
  - Hypogonadism male [None]
  - Anaemia postoperative [Not Recovered/Not Resolved]
  - Respiratory failure [Not Recovered/Not Resolved]
  - Pneumonia [Not Recovered/Not Resolved]
  - Cardiac failure congestive [Not Recovered/Not Resolved]
  - Libido decreased [None]
  - Fatigue [None]
  - Myocardial infarction [Not Recovered/Not Resolved]
  - Drug ineffective [None]

NARRATIVE: CASE EVENT DATE: 20120910
